FAERS Safety Report 26205981 (Version 1)
Quarter: 2025Q4

REPORT INFORMATION
  Report Type: Spontaneous
  Country: US (occurrence: US)
  Receive Date: 20251229
  Receipt Date: 20251229
  Transmission Date: 20260117
  Serious: Yes (Hospitalization, Other)
  Sender: HIKMA
  Company Number: US-HIKMA PHARMACEUTICALS-US-H14001-25-13551

PATIENT
  Age: 24 Year
  Sex: Male

DRUGS (2)
  1. METHOTREXATE [Suspect]
     Active Substance: METHOTREXATE
     Indication: Colitis ulcerative
     Dosage: 12.5 MILLIGRAM, WEEKLY
     Route: 061
  2. INFLIXIMAB [Suspect]
     Active Substance: INFLIXIMAB
     Indication: Colitis ulcerative
     Dosage: UNK
     Route: 065

REACTIONS (1)
  - Acute febrile neutrophilic dermatosis [Recovering/Resolving]
